FAERS Safety Report 15695781 (Version 1)
Quarter: 2018Q4

REPORT INFORMATION
  Report Type: Spontaneous
  Country: US (occurrence: US)
  Receive Date: 20181206
  Receipt Date: 20181206
  Transmission Date: 20190205
  Serious: No
  Sender: FDA-Public Use
  Company Number: US-BAYER-2018-220062

PATIENT
  Age: 56 Year
  Sex: Female

DRUGS (1)
  1. BETASERON [Suspect]
     Active Substance: INTERFERON BETA-1B
     Indication: MULTIPLE SCLEROSIS
     Dosage: 0.25 MG
     Dates: start: 201802

REACTIONS (10)
  - Hypoaesthesia [None]
  - Joint stiffness [None]
  - Dysphemia [None]
  - Urticaria [None]
  - Depression [None]
  - Depressed mood [None]
  - Decreased interest [None]
  - Pain in extremity [None]
  - Memory impairment [None]
  - Visual impairment [None]
